FAERS Safety Report 8879585 (Version 1)
Quarter: 2012Q4

REPORT INFORMATION
  Report Type: 
  Country: US (occurrence: US)
  Receive Date: 20121101
  Receipt Date: 20121101
  Transmission Date: 20130627
  Serious: Yes (Death)
  Sender: FDA-Public Use
  Company Number: US-ASTELLAS-2012US010594

PATIENT
  Age: 52 Year
  Sex: Male

DRUGS (4)
  1. PROGRAF [Suspect]
     Indication: RENAL TRANSPLANT
     Dosage: 0.5 mg, qod
     Route: 048
  2. PROGRAF [Suspect]
     Dosage: 1 mg, UID/QD
     Route: 048
     Dates: start: 20100408, end: 20110506
  3. TRAZODONE [Concomitant]
     Indication: SLEEP DISORDER
     Dosage: 25 mg, UID/QD
     Route: 048
  4. LASIX                              /00032601/ [Concomitant]
     Indication: DIURETIC THERAPY
     Dosage: 80 mg, bid
     Route: 048

REACTIONS (1)
  - Cardiac failure [Fatal]
